FAERS Safety Report 19252604 (Version 7)
Quarter: 2022Q1

REPORT INFORMATION
  Report Type: Report from Study
  Country: PR (occurrence: PR)
  Receive Date: 20210512
  Receipt Date: 20220209
  Transmission Date: 20220423
  Serious: Yes (Hospitalization, Other)
  Sender: FDA-Public Use
  Company Number: PR-ABBVIE-21K-131-3897256-00

PATIENT
  Age: 45 Year
  Sex: Male
  Weight: 86.260 kg

DRUGS (10)
  1. HUMIRA [Suspect]
     Active Substance: ADALIMUMAB
     Indication: Crohn^s disease
     Route: 058
     Dates: start: 20131220
  2. HUMIRA [Suspect]
     Active Substance: ADALIMUMAB
     Route: 058
  3. HUMIRA [Suspect]
     Active Substance: ADALIMUMAB
     Route: 058
     Dates: end: 20210423
  4. HUMIRA [Suspect]
     Active Substance: ADALIMUMAB
     Route: 058
  5. PREDNISONE [Concomitant]
     Active Substance: PREDNISONE
     Indication: Inflammation
     Route: 048
     Dates: start: 1999
  6. MERCAPTOPURINE [Concomitant]
     Active Substance: MERCAPTOPURINE
     Indication: Immunosuppression
     Route: 048
     Dates: start: 2013
  7. PEPCID [Concomitant]
     Active Substance: FAMOTIDINE
     Indication: Antacid therapy
     Route: 048
     Dates: start: 2015
  8. ELASOMERAN [Concomitant]
     Active Substance: ELASOMERAN
     Indication: COVID-19
     Dosage: 1ST DOSE
     Route: 030
     Dates: start: 20210331, end: 20210331
  9. ELASOMERAN [Concomitant]
     Active Substance: ELASOMERAN
     Dosage: 2ND DOSE
     Route: 030
     Dates: start: 20210821, end: 20210821
  10. ELASOMERAN [Concomitant]
     Active Substance: ELASOMERAN
     Dosage: 3RD DOSE
     Route: 030
     Dates: start: 20211005, end: 20211005

REACTIONS (9)
  - Intestinal obstruction [Not Recovered/Not Resolved]
  - Biliary catheter insertion [Not Recovered/Not Resolved]
  - Abdominal rigidity [Unknown]
  - Abdominal distension [Unknown]
  - Peritonitis [Recovering/Resolving]
  - Pain [Recovering/Resolving]
  - Crohn^s disease [Unknown]
  - Fistula [Recovering/Resolving]
  - Anal fistula [Unknown]

NARRATIVE: CASE EVENT DATE: 20210101
